FAERS Safety Report 5732376-7 (Version None)
Quarter: 2008Q2

REPORT INFORMATION
  Report Type: 
  Country: None (occurrence: None)
  Receive Date: 20080508
  Receipt Date: 20080428
  Transmission Date: 20081010
  Serious: Yes (Hospitalization)
  Sender: FDA-Public Use
  Company Number: FR-PFIZER INC-2008037699

PATIENT
  Age: 36 Year
  Sex: Female

DRUGS (4)
  1. SOLU-MEDROL [Suspect]
  2. XANAX [Suspect]
     Route: 048
     Dates: start: 20080228, end: 20080303
  3. DAFALGAN [Suspect]
     Route: 048
     Dates: start: 20080228, end: 20080303
  4. DOMPERIDONE [Suspect]
     Route: 048
     Dates: start: 20080228, end: 20080303

REACTIONS (1)
  - URTICARIA [None]
